FAERS Safety Report 4604517-6 (Version None)
Quarter: 2005Q2

REPORT INFORMATION
  Report Type: 
  Country: None (occurrence: None)
  Receive Date: 20050217
  Receipt Date: 20041020
  Transmission Date: 20051028
  Serious: No
  Sender: FDA-Public Use
  Company Number: S04-USA-06993-01

PATIENT
  Age: 84 Year
  Sex: Female

DRUGS (5)
  1. NAMENDA [Suspect]
     Indication: DEMENTIA ALZHEIMER'S TYPE
     Dosage: 5 MG QD PO
     Route: 048
     Dates: start: 20041017
  2. HALDOL [Concomitant]
  3. LORAZEPAM [Concomitant]
  4. METOPROLOL TARTRATE [Concomitant]
  5. ALBUTEROL [Concomitant]

REACTIONS (1)
  - AGITATION [None]
